FAERS Safety Report 8782691 (Version 1)
Quarter: 2012Q4

REPORT INFORMATION
  Report Type: 
  Country: CO (occurrence: CO)
  Receive Date: 20120913
  Receipt Date: 20120913
  Transmission Date: 20130627
  Serious: Yes (Hospitalization, Other)
  Sender: FDA-Public Use
  Company Number: CO-PFIZER INC-2012224103

PATIENT
  Age: 64 Year
  Sex: Male

DRUGS (5)
  1. LIPITOR [Suspect]
     Dosage: 20 mg, 1x/day
     Route: 048
     Dates: start: 2003, end: 2009
  2. LIPITOR [Suspect]
     Dosage: 10 mg, 1x/day
     Route: 048
     Dates: start: 2009, end: 201201
  3. LIPITOR [Suspect]
     Dosage: 20 mg, 1x/day
     Route: 048
     Dates: start: 201201
  4. SECOTEX [Concomitant]
     Indication: POLLAKIURIA
     Dosage: 0.4 mg, UNK
     Route: 048
  5. AMARYL-M [Concomitant]
     Indication: BLOOD GLUCOSE ABNORMAL
     Dosage: 1000 mg, 2x/day
     Route: 048

REACTIONS (2)
  - Blood pressure increased [Recovered/Resolved]
  - Diabetes mellitus [Unknown]
